FAERS Safety Report 10307754 (Version 4)
Quarter: 2014Q3

REPORT INFORMATION
  Report Type: Spontaneous
  Country: BR (occurrence: BR)
  Receive Date: 20140716
  Receipt Date: 20140905
  Transmission Date: 20150326
  Serious: Yes (Hospitalization, Other)
  Sender: FDA-Public Use
  Company Number: BR-SA-2014SA094266

PATIENT
  Age: 67 Year
  Sex: Female
  Weight: 61 kg

DRUGS (9)
  1. FRONTAL [Suspect]
     Active Substance: ALPRAZOLAM
     Indication: ANXIETY
     Route: 048
     Dates: start: 2010
  2. DIOVAN [Suspect]
     Active Substance: VALSARTAN
     Indication: BLOOD PRESSURE
     Dosage: STRENGTH: 160 MG
     Route: 048
     Dates: start: 20130809
  3. PURAN [Suspect]
     Active Substance: LEVOTHYROXINE SODIUM
     Indication: THYROID DISORDER
     Route: 048
     Dates: start: 2008
  4. SINVASTACOR [Suspect]
     Active Substance: SIMVASTATIN
     Indication: BLOOD CHOLESTEROL
     Dosage: STRENGTH: 40 MG
     Route: 048
     Dates: start: 2010
  5. FORASEQ [Suspect]
     Active Substance: BUDESONIDE\FORMOTEROL FUMARATE
     Indication: PNEUMONITIS
     Dosage: DOSE: 1 PER DAY OR WHEN SHE HAD CRISIS
     Route: 048
     Dates: start: 2009
  6. FRONTAL [Suspect]
     Active Substance: ALPRAZOLAM
     Indication: DIZZINESS
     Route: 048
     Dates: start: 2010
  7. PLAVIX [Suspect]
     Active Substance: CLOPIDOGREL BISULFATE
     Indication: ANGIOPLASTY
     Dosage: FREQUENCY: EVERY 2 DAYS
     Route: 048
     Dates: start: 2010
  8. RIVOTRIL [Suspect]
     Active Substance: CLONAZEPAM
     Indication: SLEEP DISORDER
     Dosage: DOSE: ONLY TAKES IT WHEN HEART RHYTHM BECOMES ACCLERATED
     Route: 048
     Dates: start: 2010
  9. PLAVIX [Suspect]
     Active Substance: CLOPIDOGREL BISULFATE
     Indication: ISCHAEMIA
     Dosage: FREQUENCY: EVERY 2 DAYS
     Route: 048
     Dates: start: 2010

REACTIONS (9)
  - Gastrooesophageal reflux disease [Not Recovered/Not Resolved]
  - Duodenectomy [Unknown]
  - Pain [Not Recovered/Not Resolved]
  - Crystal urine [Not Recovered/Not Resolved]
  - Syncope [Not Recovered/Not Resolved]
  - Duodenitis [Not Recovered/Not Resolved]
  - Loss of consciousness [Not Recovered/Not Resolved]
  - Viral infection [Not Recovered/Not Resolved]
  - Constipation [Not Recovered/Not Resolved]
